FAERS Safety Report 9651493 (Version 1)
Quarter: 2013Q4

REPORT INFORMATION
  Report Type: Spontaneous
  Country: US (occurrence: US)
  Receive Date: 20131029
  Receipt Date: 20131029
  Transmission Date: 20140711
  Serious: No
  Sender: FDA-Public Use
  Company Number: US-ENDO PHARMACEUTICALS INC.-FOLI20120004

PATIENT
  Age: 51 Year
  Sex: Female

DRUGS (1)
  1. FOLIC ACID TABLETS [Suspect]
     Indication: HIP SURGERY
     Dosage: 1MG
     Route: 048
     Dates: start: 20120817

REACTIONS (4)
  - Faeces discoloured [Not Recovered/Not Resolved]
  - Abdominal pain lower [Not Recovered/Not Resolved]
  - Constipation [Not Recovered/Not Resolved]
  - Abdominal distension [Not Recovered/Not Resolved]
